FAERS Safety Report 10135839 (Version 3)
Quarter: 2014Q2

REPORT INFORMATION
  Report Type: Report from Study
  Country: NL (occurrence: NL)
  Receive Date: 20140429
  Receipt Date: 20140521
  Transmission Date: 20141212
  Serious: Yes (Death)
  Sender: FDA-Public Use
  Company Number: NL-US-EMD SERONO, INC.-7262837

PATIENT
  Age: 52 Year
  Sex: Female
  Weight: 65 kg

DRUGS (3)
  1. REBIF [Suspect]
     Indication: MULTIPLE SCLEROSIS
     Route: 058
     Dates: start: 20140108
  2. REBIF [Suspect]
     Route: 058
     Dates: end: 20140204
  3. REBIF [Suspect]
     Route: 058
     Dates: start: 20140205

REACTIONS (6)
  - Death [Fatal]
  - Body temperature decreased [Unknown]
  - Slow speech [Unknown]
  - Somnolence [Unknown]
  - Motor dysfunction [Unknown]
  - Influenza like illness [Unknown]
